FAERS Safety Report 9516449 (Version 1)
Quarter: 2013Q3

REPORT INFORMATION
  Report Type: Spontaneous
  Country: US (occurrence: US)
  Receive Date: 20130911
  Receipt Date: 20130911
  Transmission Date: 20140515
  Serious: Yes (Other)
  Sender: FDA-Public Use
  Company Number: US-PFIZER INC-2013260368

PATIENT
  Age: 70 Year
  Sex: Female
  Weight: 55.78 kg

DRUGS (2)
  1. NORPACE CR [Suspect]
     Indication: ATRIAL FIBRILLATION
     Dosage: 150 MG, 2X/DAY
     Route: 048
  2. DILTIAZEM [Concomitant]
     Dosage: 180 MG, 1X/DAY

REACTIONS (1)
  - Anal cancer [Recovered/Resolved]
